FAERS Safety Report 5219496-0 (Version None)
Quarter: 2006Q4

REPORT INFORMATION
  Report Type: 
  Country: None (occurrence: None)
  Receive Date: 20061201
  Receipt Date: 20060719
  Transmission Date: 20070319
  Serious: No
  Sender: FDA-Public Use
  Company Number: 2006PV017808

PATIENT
  Age: 64 Year
  Sex: Female
  Weight: 82.5547 kg

DRUGS (6)
  1. BYETTA [Suspect]
     Indication: DIABETES MELLITUS INSULIN-DEPENDENT
     Dosage: 5 MCG;BID;SC
     Route: 058
     Dates: start: 20060301
  2. ACTOS /USA/ [Concomitant]
  3. LANTUS [Concomitant]
  4. NOVOLIN R [Concomitant]
  5. HUMALOG [Concomitant]
  6. NPH INSULIN [Concomitant]

REACTIONS (5)
  - ARTHRALGIA [None]
  - BLOOD GLUCOSE DECREASED [None]
  - JOINT SWELLING [None]
  - NAUSEA [None]
  - WEIGHT DECREASED [None]
